FAERS Safety Report 7832355-X (Version None)
Quarter: 2011Q4

REPORT INFORMATION
  Report Type: 
  Country: None (occurrence: None)
  Receive Date: 20111022
  Receipt Date: 20111006
  Transmission Date: 20120403
  Serious: Yes (Hospitalization)
  Sender: FDA-Public Use
  Company Number: US-BAYER-2011-012045

PATIENT
  Age: 46 Year
  Sex: Female
  Weight: 73.923 kg

DRUGS (11)
  1. MULTI-VITAMIN [Concomitant]
     Dosage: UNK UNK, QD
     Route: 048
  2. NEFAZODONE HCL [Concomitant]
     Dosage: UNK UNK, QD
     Route: 048
  3. LEVAQUIN [Concomitant]
  4. YASMIN [Suspect]
     Indication: MENSTRUATION IRREGULAR
  5. YASMIN [Suspect]
     Indication: CONTRACEPTION
     Dosage: UNK
     Dates: start: 20030618, end: 20060416
  6. ATENOLOL [Concomitant]
     Dosage: 50 MG, QD
     Route: 048
  7. CALTRATE [CALCIUM CARBONATE] [Concomitant]
     Dosage: 1200 MG, QD
     Route: 048
  8. YASMIN [Suspect]
     Indication: DYSMENORRHOEA
  9. LEVOTHYROXINE SODIUM [Concomitant]
     Dosage: 100 ?G, QD
     Route: 048
  10. FEXOFENADINE [Concomitant]
     Dosage: 1 DF, QD
     Route: 048
  11. TRAMADOL HCL [Concomitant]
     Dosage: UNK UNK, PRN

REACTIONS (9)
  - DYSPNOEA [None]
  - EMOTIONAL DISTRESS [None]
  - PAINFUL RESPIRATION [None]
  - PAIN [None]
  - ANXIETY [None]
  - PULMONARY EMBOLISM [None]
  - BACK PAIN [None]
  - LUNG DISORDER [None]
  - FEAR [None]
